FAERS Safety Report 5373440-4 (Version None)
Quarter: 2007Q2

REPORT INFORMATION
  Report Type: 
  Country: None (occurrence: None)
  Receive Date: 20070626
  Receipt Date: 20070626
  Transmission Date: 20071010
  Serious: Yes (Hospitalization)
  Sender: FDA-Public Use
  Company Number: None

PATIENT
  Age: 23 Year
  Sex: Female
  Weight: 63.05 kg

DRUGS (2)
  1. CARIMUNE [Suspect]
     Indication: CHRONIC INFLAMMATORY DEMYELINATING POLYRADICULONEUROPATHY
     Dosage: 24 GRAMS 1 DAY IV DRIP
     Route: 041
     Dates: start: 20070529, end: 20070529
  2. CARIMUNE [Suspect]
     Indication: CHRONIC INFLAMMATORY DEMYELINATING POLYRADICULONEUROPATHY
     Dosage: 24 GRAMS X 4 DAYS MONTHLY IV DRIP
     Route: 041
     Dates: start: 20070530, end: 20070601

REACTIONS (6)
  - CHILLS [None]
  - HEADACHE [None]
  - MENINGITIS [None]
  - PYREXIA [None]
  - SERUM SICKNESS [None]
  - VOMITING [None]
